FAERS Safety Report 12650037 (Version 1)
Quarter: 2016Q3

REPORT INFORMATION
  Report Type: Spontaneous
  Country: JP (occurrence: JP)
  Receive Date: 20160813
  Receipt Date: 20160813
  Transmission Date: 20161109
  Serious: Yes (Death, Hospitalization, Other)
  Sender: FDA-Public Use
  Company Number: JP-ACCORD-043134

PATIENT
  Age: 77 Year
  Sex: Male

DRUGS (4)
  1. PACLITAXEL/PACLITAXEL LIPOSOME [Suspect]
     Active Substance: PACLITAXEL
     Indication: METASTASIS
     Dosage: FOUR COURSES
  2. CARBOPLATIN. [Suspect]
     Active Substance: CARBOPLATIN
     Indication: METASTASIS
     Dosage: FOUR COURSES
  3. NEORAL [Suspect]
     Active Substance: CYCLOSPORINE
     Indication: PSORIASIS
     Route: 048
     Dates: start: 2001
  4. METHOTREXATE. [Suspect]
     Active Substance: METHOTREXATE
     Indication: PSORIASIS
     Route: 048
     Dates: start: 2004

REACTIONS (6)
  - Leukopenia [Unknown]
  - Infection [Fatal]
  - Pulmonary oedema [Fatal]
  - Sebaceous carcinoma [Unknown]
  - Febrile neutropenia [Fatal]
  - Acute respiratory failure [Fatal]
